FAERS Safety Report 6180200-3 (Version None)
Quarter: 2009Q2

REPORT INFORMATION
  Report Type: 
  Country: None (occurrence: None)
  Receive Date: 20090505
  Receipt Date: 20090505
  Transmission Date: 20091009
  Serious: Yes (Hospitalization, Other)
  Sender: FDA-Public Use
  Company Number: US-RB-015021-09

PATIENT
  Sex: Male

DRUGS (4)
  1. SUBOXONE [Suspect]
     Route: 060
     Dates: start: 20081204, end: 20090322
  2. SUBOXONE [Suspect]
     Route: 060
     Dates: start: 20090323
  3. SUBOXONE [Suspect]
     Dosage: DECREASING DOSES FROM 8 MG
     Route: 060
     Dates: end: 20090417
  4. SUBOXONE [Suspect]
     Route: 060
     Dates: start: 20090420

REACTIONS (1)
  - GRAND MAL CONVULSION [None]
